FAERS Safety Report 9466358 (Version 1)
Quarter: 2013Q3

REPORT INFORMATION
  Report Type: Spontaneous
  Country: BG (occurrence: BG)
  Receive Date: 20130820
  Receipt Date: 20130820
  Transmission Date: 20140515
  Serious: Yes (Death)
  Sender: FDA-Public Use
  Company Number: BG-ABBOTT-13P-022-1133685-00

PATIENT
  Sex: Female

DRUGS (4)
  1. HUMIRA [Suspect]
     Indication: RHEUMATOID ARTHRITIS
     Route: 058
     Dates: start: 20130420
  2. MEDROL [Concomitant]
     Indication: RHEUMATOID ARTHRITIS
     Route: 048
  3. CONCOR [Concomitant]
     Indication: HYPERTENSION
     Dosage: NOT REPORTED
     Route: 048
     Dates: start: 20130412
  4. ENALAPRIL [Concomitant]
     Indication: HYPERTENSION
     Dosage: NOT REPORTED
     Route: 048
     Dates: start: 20130412

REACTIONS (1)
  - Death [Fatal]
